FAERS Safety Report 17625772 (Version 13)
Quarter: 2022Q3

REPORT INFORMATION
  Report Type: Report from Study
  Country: JP (occurrence: JP)
  Receive Date: 20200404
  Receipt Date: 20220824
  Transmission Date: 20221027
  Serious: Yes (Hospitalization, Other)
  Sender: FDA-Public Use
  Company Number: JP-ONO-2020JP008306

PATIENT
  Age: 43 Year
  Sex: Female
  Weight: 42.8 kg

DRUGS (68)
  1. ETELCALCETIDE [Suspect]
     Active Substance: ETELCALCETIDE
     Indication: Hyperparathyroidism secondary
     Dosage: 2.5 MILLIGRAM, QWK
     Route: 010
     Dates: start: 20190816, end: 20201121
  2. ETELCALCETIDE [Suspect]
     Active Substance: ETELCALCETIDE
     Dosage: 3.3 MILLIGRAM, QWK
     Route: 010
     Dates: start: 20201128
  3. ROCALTROL [Concomitant]
     Active Substance: CALCITRIOL
     Dosage: 1 MICROGRAM
     Route: 042
     Dates: end: 20180129
  4. ROCALTROL [Concomitant]
     Active Substance: CALCITRIOL
     Dosage: 1.5 MICROGRAM
     Route: 042
     Dates: end: 20180131
  5. ROCALTROL [Concomitant]
     Active Substance: CALCITRIOL
     Dosage: 1.5 MICROGRAM, Q56H
     Route: 042
     Dates: start: 20180207, end: 20180907
  6. ROCALTROL [Concomitant]
     Active Substance: CALCITRIOL
     Dosage: 1.25 MICROGRAM, QW
     Route: 042
     Dates: start: 20180917, end: 20181008
  7. ROCALTROL [Concomitant]
     Active Substance: CALCITRIOL
     Dosage: 1.5 MICROGRAM, Q84H
     Route: 042
     Dates: start: 20181012, end: 20181214
  8. ROCALTROL [Concomitant]
     Active Substance: CALCITRIOL
     Dosage: 1 MICROGRAM, QW
     Route: 042
     Dates: start: 20181015, end: 20181210
  9. ROCALTROL [Concomitant]
     Active Substance: CALCITRIOL
     Dosage: 1 MICROGRAM, Q2WK
     Route: 042
     Dates: start: 20190904, end: 20200902
  10. ROCALTROL [Concomitant]
     Active Substance: CALCITRIOL
     Dosage: 0.5 MICROGRAM, Q2WK
     Route: 042
     Dates: start: 20190828, end: 20200909
  11. ROCALTROL [Concomitant]
     Active Substance: CALCITRIOL
     Dosage: 1.5 MICROGRAM, Q84H
     Route: 042
     Dates: start: 20180914, end: 20181010
  12. ROCALTROL [Concomitant]
     Active Substance: CALCITRIOL
     Dosage: 1.5 MICROGRAM, Q56H
     Route: 042
     Dates: start: 20181217, end: 20181221
  13. ROCALTROL [Concomitant]
     Active Substance: CALCITRIOL
     Dosage: 1.5 MICROGRAM, Q84H
     Route: 042
     Dates: start: 20181224, end: 20190104
  14. ROCALTROL [Concomitant]
     Active Substance: CALCITRIOL
     Dosage: 1 MICROGRAM, QWK
     Route: 042
     Dates: start: 20181226, end: 20190102
  15. ROCALTROL [Concomitant]
     Active Substance: CALCITRIOL
     Dosage: 1.5 MICROGRAM, Q56H
     Route: 042
     Dates: start: 20190107, end: 20190202
  16. ROCALTROL [Concomitant]
     Active Substance: CALCITRIOL
     Dosage: 1.5 MICROGRAM, Q84H
     Route: 042
     Dates: start: 20190204
  17. ROCALTROL [Concomitant]
     Active Substance: CALCITRIOL
     Dosage: 1 MICROGRAM, Q2WK
     Route: 042
     Dates: start: 20190206, end: 20190821
  18. ROCALTROL [Concomitant]
     Active Substance: CALCITRIOL
     Dosage: 1.5 MICROGRAM, Q2WK
     Route: 042
     Dates: start: 20190213, end: 20190814
  19. ROCALTROL [Concomitant]
     Active Substance: CALCITRIOL
     Dosage: 0.67 MICROGRAM, QWK
     Route: 042
     Dates: start: 20200916, end: 20201021
  20. ROCALTROL [Concomitant]
     Active Substance: CALCITRIOL
     Dosage: 0.5 MICROGRAM, QWK
     Route: 042
     Dates: start: 20201028, end: 20210310
  21. ROCALTROL [Concomitant]
     Active Substance: CALCITRIOL
     Dosage: 0.3 MICROGRAM, QWK
     Route: 042
     Dates: start: 20210317
  22. FERRIC CITRATE ANHYDROUS [Concomitant]
     Active Substance: FERRIC CITRATE ANHYDROUS
     Dosage: 2500 MILLIGRAM, QD
     Route: 065
     Dates: end: 20190815
  23. FERRIC CITRATE ANHYDROUS [Concomitant]
     Active Substance: FERRIC CITRATE ANHYDROUS
     Dosage: 3000 MILLIGRAM, QD
     Route: 065
     Dates: start: 20190816, end: 20200813
  24. FERRIC CITRATE ANHYDROUS [Concomitant]
     Active Substance: FERRIC CITRATE ANHYDROUS
     Dosage: 3250 MILLIGRAM, QD
     Route: 065
     Dates: start: 20200814
  25. FERRIC HYDROXIDE [Concomitant]
     Active Substance: FERRIC HYDROXIDE
     Dosage: 1000 MILLIGRAM, QD
     Route: 065
     Dates: start: 20180509, end: 20180814
  26. FERRIC HYDROXIDE [Concomitant]
     Active Substance: FERRIC HYDROXIDE
     Dosage: 1250 MILLIGRAM, QD
     Route: 065
     Dates: start: 20180815, end: 20181009
  27. FERRIC HYDROXIDE [Concomitant]
     Active Substance: FERRIC HYDROXIDE
     Dosage: 2500 MILLIGRAM, QD
     Route: 065
     Dates: start: 20181010, end: 20181129
  28. FERRIC HYDROXIDE [Concomitant]
     Active Substance: FERRIC HYDROXIDE
     Dosage: 3500 MILLIGRAM, QD
     Route: 065
     Dates: start: 20181130, end: 20200710
  29. FERRIC HYDROXIDE [Concomitant]
     Active Substance: FERRIC HYDROXIDE
     Dosage: 3000 MILLIGRAM, QD
     Route: 065
     Dates: start: 20200711
  30. MIRCERA [Concomitant]
     Active Substance: METHOXY POLYETHYLENE GLYCOL-EPOETIN BETA
     Dosage: 25 MICROGRAM, QWK
     Route: 065
     Dates: start: 20180914, end: 20181130
  31. MIRCERA [Concomitant]
     Active Substance: METHOXY POLYETHYLENE GLYCOL-EPOETIN BETA
     Dosage: 87.5 MICROGRAM, QWK
     Route: 065
     Dates: end: 20180824
  32. MIRCERA [Concomitant]
     Active Substance: METHOXY POLYETHYLENE GLYCOL-EPOETIN BETA
     Dosage: 50 MICROGRAM, QWK
     Route: 065
     Dates: start: 20180901, end: 20180907
  33. MIRCERA [Concomitant]
     Active Substance: METHOXY POLYETHYLENE GLYCOL-EPOETIN BETA
     Dosage: 37.5 MICROGRAM, QWK
     Route: 065
     Dates: start: 20181214, end: 20190316
  34. MIRCERA [Concomitant]
     Active Substance: METHOXY POLYETHYLENE GLYCOL-EPOETIN BETA
     Dosage: 18.75 MICROGRAM, QWK
     Route: 065
     Dates: start: 20190322, end: 20190705
  35. MIRCERA [Concomitant]
     Active Substance: METHOXY POLYETHYLENE GLYCOL-EPOETIN BETA
     Dosage: 25 MICROGRAM, QWK
     Route: 065
     Dates: start: 20190712, end: 20190906
  36. MIRCERA [Concomitant]
     Active Substance: METHOXY POLYETHYLENE GLYCOL-EPOETIN BETA
     Dosage: 50 MICROGRAM, Q4WK
     Route: 065
     Dates: start: 20190913, end: 20191108
  37. MIRCERA [Concomitant]
     Active Substance: METHOXY POLYETHYLENE GLYCOL-EPOETIN BETA
     Dosage: 25 MICROGRAM, QWK
     Route: 065
     Dates: start: 20191115, end: 20191213
  38. MIRCERA [Concomitant]
     Active Substance: METHOXY POLYETHYLENE GLYCOL-EPOETIN BETA
     Dosage: 16.7 MICROGRAM, QWK
     Route: 065
     Dates: start: 20191220, end: 20200214
  39. MIRCERA [Concomitant]
     Active Substance: METHOXY POLYETHYLENE GLYCOL-EPOETIN BETA
     Dosage: 25 MICROGRAM, QWK
     Route: 065
     Dates: start: 20200221, end: 20200228
  40. MIRCERA [Concomitant]
     Active Substance: METHOXY POLYETHYLENE GLYCOL-EPOETIN BETA
     Dosage: 25 MICROGRAM, QWK
     Route: 065
     Dates: start: 20200313, end: 20200327
  41. MIRCERA [Concomitant]
     Active Substance: METHOXY POLYETHYLENE GLYCOL-EPOETIN BETA
     Dosage: 25 MICROGRAM, QWK
     Route: 065
     Dates: start: 20200411, end: 20200418
  42. MIRCERA [Concomitant]
     Active Substance: METHOXY POLYETHYLENE GLYCOL-EPOETIN BETA
     Dosage: 25 MICROGRAM, QWK
     Route: 065
     Dates: start: 20200502, end: 20200606
  43. MIRCERA [Concomitant]
     Active Substance: METHOXY POLYETHYLENE GLYCOL-EPOETIN BETA
     Dosage: 25 MICROGRAM, QWK
     Route: 065
     Dates: start: 20200619, end: 20200704
  44. MIRCERA [Concomitant]
     Active Substance: METHOXY POLYETHYLENE GLYCOL-EPOETIN BETA
     Dosage: 25 MICROGRAM, QWK
     Route: 065
     Dates: start: 20200718, end: 20200731
  45. MIRCERA [Concomitant]
     Active Substance: METHOXY POLYETHYLENE GLYCOL-EPOETIN BETA
     Dosage: 25 MICROGRAM, QWK
     Route: 065
     Dates: start: 20200814, end: 20200829
  46. MIRCERA [Concomitant]
     Active Substance: METHOXY POLYETHYLENE GLYCOL-EPOETIN BETA
     Dosage: 25 MICROGRAM, QWK
     Route: 065
     Dates: start: 20200912, end: 20200926
  47. MIRCERA [Concomitant]
     Active Substance: METHOXY POLYETHYLENE GLYCOL-EPOETIN BETA
     Dosage: 25 MICROGRAM, QWK
     Route: 065
     Dates: start: 20201010, end: 20201024
  48. MIRCERA [Concomitant]
     Active Substance: METHOXY POLYETHYLENE GLYCOL-EPOETIN BETA
     Dosage: 25 MICROGRAM, QWK
     Route: 065
     Dates: start: 20201107, end: 20201121
  49. MIRCERA [Concomitant]
     Active Substance: METHOXY POLYETHYLENE GLYCOL-EPOETIN BETA
     Dosage: 25 MICROGRAM, QWK
     Route: 065
     Dates: start: 20201205, end: 20201219
  50. MIRCERA [Concomitant]
     Active Substance: METHOXY POLYETHYLENE GLYCOL-EPOETIN BETA
     Dosage: 25 MICROGRAM, QWK
     Route: 065
     Dates: start: 20210102, end: 20210402
  51. MIRCERA [Concomitant]
     Active Substance: METHOXY POLYETHYLENE GLYCOL-EPOETIN BETA
     Dosage: 25 MICROGRAM, QWK
     Route: 065
     Dates: start: 20210416, end: 20210501
  52. MIRCERA [Concomitant]
     Active Substance: METHOXY POLYETHYLENE GLYCOL-EPOETIN BETA
     Dosage: 25 MICROGRAM, QWK
     Route: 065
     Dates: start: 20210514, end: 20210528
  53. MIRCERA [Concomitant]
     Active Substance: METHOXY POLYETHYLENE GLYCOL-EPOETIN BETA
     Dosage: 18.75 MICROGRAM, QWK
     Dates: start: 20210611, end: 20210730
  54. MIRCERA [Concomitant]
     Active Substance: METHOXY POLYETHYLENE GLYCOL-EPOETIN BETA
     Dosage: 25 MICROGRAM, QD
     Dates: start: 20210806, end: 20210806
  55. MIRCERA [Concomitant]
     Active Substance: METHOXY POLYETHYLENE GLYCOL-EPOETIN BETA
     Dosage: 16.7 MICROGRAM, QWK
     Dates: start: 20210813, end: 20211119
  56. MIRCERA [Concomitant]
     Active Substance: METHOXY POLYETHYLENE GLYCOL-EPOETIN BETA
     Dosage: 25 MICROGRAM, QD
     Dates: start: 20211203, end: 20211203
  57. MIRCERA [Concomitant]
     Active Substance: METHOXY POLYETHYLENE GLYCOL-EPOETIN BETA
     Dosage: 18.75 MICROGRAM, QWK
     Dates: start: 20211210, end: 20211231
  58. MIRCERA [Concomitant]
     Active Substance: METHOXY POLYETHYLENE GLYCOL-EPOETIN BETA
     Dosage: 16.7 MICROGRAM, QWK
     Dates: start: 20220104, end: 20220401
  59. MIRCERA [Concomitant]
     Active Substance: METHOXY POLYETHYLENE GLYCOL-EPOETIN BETA
     Dosage: 12.5 MICROGRAM, QWK
     Dates: start: 20220408
  60. CALTAN [Concomitant]
     Active Substance: CALCIUM CARBONATE
     Dosage: 250 MILLIGRAM, QD
     Route: 048
     Dates: start: 20200214, end: 20200313
  61. CALTAN [Concomitant]
     Active Substance: CALCIUM CARBONATE
     Dosage: 500 MILLIGRAM, QD
     Route: 048
     Dates: start: 20200314, end: 20200710
  62. CALTAN [Concomitant]
     Active Substance: CALCIUM CARBONATE
     Dosage: 1000 MILLIGRAM, QD
     Route: 048
     Dates: start: 20200711, end: 20210909
  63. CALTAN [Concomitant]
     Active Substance: CALCIUM CARBONATE
     Dosage: 750 MILLIGRAM, QD
     Route: 048
     Dates: start: 20210910
  64. FOSRENOL [Concomitant]
     Active Substance: LANTHANUM CARBONATE
     Dosage: 500 MILLIGRAM, QD
     Route: 048
     Dates: start: 20190301, end: 20190315
  65. FOSRENOL [Concomitant]
     Active Substance: LANTHANUM CARBONATE
     Dosage: 1000 MILLIGRAM, QD
     Route: 048
     Dates: start: 20190316
  66. Fesin [Concomitant]
     Dosage: 40 MILLIGRAM, Q4WK
     Route: 065
     Dates: start: 20200115, end: 20210505
  67. Fesin [Concomitant]
     Dosage: 20 MILLIGRAM, QWK
     Route: 065
     Dates: start: 20210512, end: 20220209
  68. Fesin [Concomitant]
     Dosage: 13.3 MILLIGRAM, QWK
     Route: 065
     Dates: start: 20220223

REACTIONS (3)
  - Shunt occlusion [Recovered/Resolved]
  - Shunt occlusion [Recovered/Resolved]
  - Shunt occlusion [Recovered/Resolved]

NARRATIVE: CASE EVENT DATE: 20191123
